FAERS Safety Report 8246337-X (Version None)
Quarter: 2012Q1

REPORT INFORMATION
  Report Type: 
  Country: None (occurrence: None)
  Receive Date: 20120329
  Receipt Date: 20120329
  Transmission Date: 20120608
  Serious: No
  Sender: FDA-Public Use
  Company Number: None

PATIENT
  Sex: Female
  Weight: 58.9676 kg

DRUGS (1)
  1. ZOLPIDEM [Suspect]
     Indication: INSOMNIA
     Dosage: 5MG QD PO
     Route: 048
     Dates: start: 20120201

REACTIONS (3)
  - PRODUCT SUBSTITUTION ISSUE [None]
  - CONSTIPATION [None]
  - DRY MOUTH [None]
